FAERS Safety Report 22062373 (Version 1)
Quarter: 2023Q1

REPORT INFORMATION
  Report Type: Spontaneous
  Country: US (occurrence: US)
  Receive Date: 20230305
  Receipt Date: 20230305
  Transmission Date: 20230418
  Serious: No
  Sender: FDA-Public Use
  Company Number: US-JNJFOC-20230301654

PATIENT
  Age: 8 Year
  Sex: Male
  Weight: 31.780 kg

DRUGS (1)
  1. CONCERTA [Suspect]
     Active Substance: METHYLPHENIDATE HYDROCHLORIDE
     Indication: Attention deficit hyperactivity disorder
     Route: 065
     Dates: start: 202210

REACTIONS (3)
  - Product dose omission issue [Unknown]
  - Adverse event [Unknown]
  - Product availability issue [Unknown]
